FAERS Safety Report 20167009 (Version 1)
Quarter: 2021Q4

REPORT INFORMATION
  Report Type: Report from Study
  Country: US (occurrence: US)
  Receive Date: 20211209
  Receipt Date: 20211209
  Transmission Date: 20220303
  Serious: Yes (Life-Threatening, Hospitalization)
  Sender: FDA-Public Use
  Company Number: US-SERVIER-S21013560

PATIENT

DRUGS (6)
  1. PEGASPARGASE [Suspect]
     Active Substance: PEGASPARGASE
     Indication: B-cell type acute leukaemia
     Dosage: 2500 IU/M?, EVERY 2 WEEKS
     Route: 042
     Dates: start: 20211118, end: 20211118
  2. DEXAMETHASONE [Suspect]
     Active Substance: DEXAMETHASONE
     Indication: B-cell type acute leukaemia
     Dosage: 18 MG/M?, D1 TO D5
     Route: 048
     Dates: start: 20211118, end: 20211122
  3. VINCRISTINE SULFATE [Suspect]
     Active Substance: VINCRISTINE SULFATE
     Indication: B-cell type acute leukaemia
     Dosage: 2 MG/M?, D1
     Route: 042
     Dates: start: 20211118, end: 20211118
  4. MERCAPTOPURINE [Suspect]
     Active Substance: MERCAPTOPURINE
     Indication: B-cell type acute leukaemia
     Dosage: 50 MG/M?, D1 TO D14
     Route: 048
     Dates: start: 20211118, end: 20211122
  5. DOXORUBICIN HYDROCHLORIDE [Suspect]
     Active Substance: DOXORUBICIN HYDROCHLORIDE
     Indication: B-cell type acute leukaemia
     Dosage: 30 MG/M?, D1
     Route: 042
     Dates: start: 20211118, end: 20211118
  6. DEXRAZOXANE [Suspect]
     Active Substance: DEXRAZOXANE
     Indication: B-cell type acute leukaemia
     Dosage: 300 MG/M?, D1
     Route: 042
     Dates: start: 20211118, end: 20211118

REACTIONS (1)
  - Pseudomonal sepsis [Recovering/Resolving]

NARRATIVE: CASE EVENT DATE: 20111123
